FAERS Safety Report 14015266 (Version 1)
Quarter: 2017Q3

REPORT INFORMATION
  Report Type: Spontaneous
  Country: US (occurrence: None)
  Receive Date: 20170927
  Receipt Date: 20170927
  Transmission Date: 20171128
  Serious: Yes (Death, Life-Threatening, Hospitalization, Disabling)
  Sender: FDA-Public Use
  Company Number: None

PATIENT
  Age: 54 Year
  Sex: Female
  Weight: 79.38 kg

DRUGS (2)
  1. FENTANYL. [Suspect]
     Active Substance: FENTANYL
     Indication: H1N1 INFLUENZA
     Dates: start: 20170304, end: 20170309
  2. VERSED [Suspect]
     Active Substance: MIDAZOLAM HYDROCHLORIDE
     Dates: start: 20170304, end: 20170324

REACTIONS (2)
  - Refusal of treatment by patient [None]
  - Acute respiratory distress syndrome [None]

NARRATIVE: CASE EVENT DATE: 20170304
